FAERS Safety Report 13856407 (Version 1)
Quarter: 2017Q3

REPORT INFORMATION
  Report Type: Spontaneous
  Country: US (occurrence: US)
  Receive Date: 20170810
  Receipt Date: 20170810
  Transmission Date: 20171127
  Serious: No
  Sender: FDA-Public Use
  Company Number: PHEH2017US024947

PATIENT
  Sex: Female

DRUGS (1)
  1. VOTRIENT [Suspect]
     Active Substance: PAZOPANIB HYDROCHLORIDE
     Indication: RENAL CANCER
     Dosage: 200 MG, QD
     Route: 048

REACTIONS (7)
  - Contusion [Unknown]
  - Vulvovaginal burning sensation [Unknown]
  - Anorectal discomfort [Unknown]
  - Hair colour changes [Unknown]
  - Peripheral swelling [Unknown]
  - Erythema [Unknown]
  - Alopecia [Unknown]
